FAERS Safety Report 20803652 (Version 1)
Quarter: 2022Q2

REPORT INFORMATION
  Report Type: Spontaneous
  Country: NL (occurrence: NL)
  Receive Date: 20220509
  Receipt Date: 20220509
  Transmission Date: 20220720
  Serious: Yes (Death)
  Sender: FDA-Public Use
  Company Number: None

PATIENT
  Age: 84 Year
  Sex: Male
  Weight: 68 kg

DRUGS (21)
  1. PHENPROCOUMON [Suspect]
     Active Substance: PHENPROCOUMON
     Indication: Product used for unknown indication
     Dosage: UNK(ONBEKEND)
     Route: 065
     Dates: start: 2011, end: 20211204
  2. PREDNISOLONE [Suspect]
     Active Substance: PREDNISOLONE
     Indication: Rheumatoid arthritis
     Dosage: UNK (ONBEKEND)
     Route: 065
     Dates: start: 20211202
  3. FOLIC ACID [Concomitant]
     Active Substance: FOLIC ACID
     Indication: Folate deficiency
     Dosage: UNK(ONBEKEND)
     Route: 065
     Dates: start: 2021, end: 2021
  4. LIDOCAINE [Concomitant]
     Active Substance: LIDOCAINE
     Indication: Product used for unknown indication
     Dosage: UNK(ONBEKEND, 20/0.5MG/G)
     Route: 065
     Dates: start: 20211130, end: 2021
  5. PREDNISOLONE [Concomitant]
     Active Substance: PREDNISOLONE
     Indication: Product used for unknown indication
     Dosage: UNK(ONBEKEND)
     Route: 065
     Dates: start: 20211104, end: 20211202
  6. PREDNISOLONE [Concomitant]
     Active Substance: PREDNISOLONE
     Dosage: ONBEKEND
     Route: 065
     Dates: start: 20211202
  7. LEVOMENTHOL [Concomitant]
     Active Substance: LEVOMENTHOL
     Indication: Product used for unknown indication
     Dosage: UNK(ONBEKEND, 10 MG/G)
     Route: 065
     Dates: start: 20210921, end: 202112
  8. MELATONIN [Concomitant]
     Active Substance: MELATONIN
     Indication: Product used for unknown indication
     Dosage: UNK(ONBEKEND)
     Route: 065
     Dates: start: 20210421, end: 202112
  9. PERINDOPRIL [Concomitant]
     Active Substance: PERINDOPRIL
     Indication: Product used for unknown indication
     Dosage: UNK(ONBEKEND)
     Route: 065
     Dates: start: 2021, end: 2021
  10. FUROSEMIDE [Concomitant]
     Active Substance: FUROSEMIDE
     Indication: Product used for unknown indication
     Dosage: UNK(ONBEKEND)
     Route: 065
     Dates: start: 2021, end: 2021
  11. PANTOPRAZOLE [Concomitant]
     Active Substance: PANTOPRAZOLE
     Indication: Product used for unknown indication
     Dosage: UNK(ONBEKEND)
     Route: 065
     Dates: start: 2021, end: 2021
  12. OXYCODONE [Concomitant]
     Active Substance: OXYCODONE
     Indication: Rheumatoid arthritis
     Dosage: UNK(ONBEKEND, TABLET 5 MG)
     Route: 065
     Dates: start: 20210421, end: 20211204
  13. OXYCODONE [Concomitant]
     Active Substance: OXYCODONE
     Dosage: UNK(ONBEKEND) (CAPSULE)
     Route: 065
     Dates: start: 20211129, end: 20211204
  14. CHOLECALCIFEROL [Concomitant]
     Active Substance: CHOLECALCIFEROL
     Indication: Product used for unknown indication
     Dosage: UNK(ONBEKEND, 800IE)
     Route: 065
     Dates: start: 2021, end: 2021
  15. METOPROLOL [Concomitant]
     Active Substance: METOPROLOL
     Indication: Product used for unknown indication
     Dosage: UNK(ONBEKEND)
     Route: 065
     Dates: start: 2021, end: 2021
  16. CINACALCET [Concomitant]
     Active Substance: CINACALCET
     Indication: Product used for unknown indication
     Dosage: ONBEKEND
     Route: 065
     Dates: start: 2021, end: 2021
  17. ACETAMINOPHEN [Concomitant]
     Active Substance: ACETAMINOPHEN
     Indication: Rheumatoid arthritis
     Dosage: UNK(ONBEKEND)
     Route: 065
     Dates: start: 20210421, end: 202112
  18. CICLOPIROX [Concomitant]
     Active Substance: CICLOPIROX
     Indication: Product used for unknown indication
     Dosage: (ONBEKEND,10MG/G)
     Route: 065
     Dates: start: 2021, end: 20211203
  19. CIPROFLOXACIN [Concomitant]
     Active Substance: CIPROFLOXACIN
     Indication: Urinary tract infection
     Dosage: UNK(ONBEKEND)
     Route: 065
     Dates: start: 20211129, end: 2021
  20. METHOTREXATE (METHOTREXATE SODIUM) [Concomitant]
     Active Substance: METHOTREXATE SODIUM
     Indication: Product used for unknown indication
     Dosage: UNK(ONBEKEND)
     Route: 065
     Dates: start: 20211021, end: 2021
  21. POLYETHYLENE GLYCOLS [Concomitant]
     Active Substance: POLYETHYLENE GLYCOLS
     Indication: Product used for unknown indication
     Dosage: UNK(ONBEKEND)
     Route: 065
     Dates: start: 2021, end: 2021

REACTIONS (1)
  - Rectal haemorrhage [Fatal]

NARRATIVE: CASE EVENT DATE: 20211204
